FAERS Safety Report 6508303-1 (Version None)
Quarter: 2009Q4

REPORT INFORMATION
  Report Type: 
  Country: None (occurrence: None)
  Receive Date: 20091221
  Receipt Date: 20081110
  Transmission Date: 20100525
  Serious: No
  Sender: FDA-Public Use
  Company Number: US-ASTRAZENECA-2008UW25100

PATIENT
  Age: 57 Year
  Sex: Female
  Weight: 72.6 kg

DRUGS (4)
  1. CRESTOR [Suspect]
     Route: 048
  2. NON-ENTERIC COATED ASPIRIN [Suspect]
     Route: 065
  3. CYMBALTA [Concomitant]
  4. LUVOX [Concomitant]

REACTIONS (1)
  - DUODENOGASTRIC REFLUX [None]
